FAERS Safety Report 12853729 (Version 1)
Quarter: 2016Q4

REPORT INFORMATION
  Report Type: Spontaneous
  Country: US (occurrence: US)
  Receive Date: 20161017
  Receipt Date: 20161017
  Transmission Date: 20170207
  Serious: No
  Sender: FDA-Public Use
  Company Number: PHEH2016US025859

PATIENT

DRUGS (1)
  1. GLEEVEC [Suspect]
     Active Substance: IMATINIB MESYLATE
     Indication: PRODUCT USED FOR UNKNOWN INDICATION
     Dosage: 400 MG, QD (DAILY)
     Route: 048

REACTIONS (7)
  - Arthritis [Unknown]
  - Arthralgia [Unknown]
  - Diarrhoea [Unknown]
  - Arthropathy [Unknown]
  - Bone pain [Unknown]
  - Gout [Unknown]
  - Blood creatinine increased [Unknown]
